FAERS Safety Report 7912026-1 (Version None)
Quarter: 2011Q4

REPORT INFORMATION
  Report Type: 
  Country: None (occurrence: None)
  Receive Date: 20111114
  Receipt Date: 20111104
  Transmission Date: 20120403
  Serious: Yes (Hospitalization)
  Sender: FDA-Public Use
  Company Number: FR-EISAI INC-E3810-04604-SPO-FR

PATIENT
  Sex: Female

DRUGS (11)
  1. ASPIRIN [Suspect]
     Route: 048
     Dates: end: 20110210
  2. METHOTREXATE SODIUM [Suspect]
     Dosage: 20 MG/ML
     Route: 058
     Dates: start: 20110119, end: 20110119
  3. CRESTOR [Suspect]
     Indication: HYPERCHOLESTEROLAEMIA
     Route: 048
     Dates: end: 20110208
  4. LOSARTAN POTASSIUM AND HYDROCHLOROTHIAZIDE [Suspect]
     Route: 048
     Dates: end: 20110210
  5. PREDNISONE [Suspect]
     Route: 048
     Dates: end: 20110210
  6. METHOTREXATE SODIUM [Suspect]
     Dosage: 10 MG/ML
     Route: 058
     Dates: start: 20101021
  7. RABEPRAZOLE SODIUM [Suspect]
     Route: 048
     Dates: end: 20110210
  8. METHOTREXATE SODIUM [Suspect]
     Route: 058
     Dates: start: 20070201
  9. ISOPTIN [Suspect]
     Route: 048
     Dates: end: 20110210
  10. ZOLPIDEM TARTRATE [Suspect]
     Route: 048
  11. ELUDRIL [Suspect]

REACTIONS (1)
  - INTERSTITIAL LUNG DISEASE [None]
